FAERS Safety Report 4865995-0 (Version None)
Quarter: 2005Q4

REPORT INFORMATION
  Report Type: 
  Country: None (occurrence: None)
  Receive Date: 20051221
  Receipt Date: 20051208
  Transmission Date: 20060501
  Serious: Yes (Other)
  Sender: FDA-Public Use
  Company Number: B0403976A

PATIENT
  Age: 33 Year
  Sex: Female

DRUGS (2)
  1. FLOLAN [Suspect]
     Dosage: CATHETER
  2. OXYGEN (OXYGEN) [Suspect]

REACTIONS (3)
  - CAESAREAN SECTION [None]
  - DRUG EXPOSURE DURING PREGNANCY [None]
  - HYPOXIA [None]
